FAERS Safety Report 15015481 (Version 1)
Quarter: 2018Q2

REPORT INFORMATION
  Report Type: Spontaneous
  Country: JP (occurrence: JP)
  Receive Date: 20180615
  Receipt Date: 20180615
  Transmission Date: 20180711
  Serious: Yes (Other)
  Sender: FDA-Public Use
  Company Number: JP-BRISTOL-MYERS SQUIBB COMPANY-BMS-2018-054569

PATIENT
  Age: 7 Decade
  Sex: Male

DRUGS (1)
  1. BARACLUDE [Suspect]
     Active Substance: ENTECAVIR
     Indication: PRODUCT USED FOR UNKNOWN INDICATION
     Dosage: UNK UNK, QHS
     Route: 048

REACTIONS (1)
  - Arthropathy [Unknown]
